FAERS Safety Report 12855722 (Version 4)
Quarter: 2016Q4

REPORT INFORMATION
  Report Type: Spontaneous
  Country: CN (occurrence: CN)
  Receive Date: 20161018
  Receipt Date: 20161027
  Transmission Date: 20170207
  Serious: Yes (Death, Hospitalization)
  Sender: FDA-Public Use
  Company Number: CN-JNJFOC-20161011950

PATIENT

DRUGS (2)
  1. ACETAMINOPHEN. [Suspect]
     Active Substance: ACETAMINOPHEN
     Indication: PRODUCT USED FOR UNKNOWN INDICATION
     Route: 065
  2. ACETAMINOPHEN. [Suspect]
     Active Substance: ACETAMINOPHEN
     Route: 065

REACTIONS (10)
  - Toxicity to various agents [Unknown]
  - Intracranial pressure increased [Fatal]
  - Haemorrhage intracranial [Fatal]
  - Acute respiratory distress syndrome [Fatal]
  - Acute hepatic failure [Unknown]
  - Multiple organ dysfunction syndrome [Fatal]
  - Renal failure [Fatal]
  - Brain oedema [Fatal]
  - Sepsis [Fatal]
  - Gastrointestinal haemorrhage [Fatal]
